FAERS Safety Report 6379070-X (Version None)
Quarter: 2009Q3

REPORT INFORMATION
  Report Type: 
  Country: None (occurrence: None)
  Receive Date: 20090928
  Receipt Date: 20090924
  Transmission Date: 20100115
  Serious: Yes (Life-Threatening, Hospitalization)
  Sender: FDA-Public Use
  Company Number: GB-ASTRAZENECA-2009SE15221

PATIENT
  Sex: Female

DRUGS (2)
  1. QUETIAPINE FUMARATE [Suspect]
  2. PARACETAMOL [Suspect]

REACTIONS (4)
  - GLASGOW COMA SCALE ABNORMAL [None]
  - HYPOTENSION [None]
  - MULTIPLE DRUG OVERDOSE [None]
  - TACHYCARDIA [None]
